FAERS Safety Report 8163570-6 (Version None)
Quarter: 2012Q1

REPORT INFORMATION
  Report Type: 
  Country: None (occurrence: None)
  Receive Date: 20120224
  Receipt Date: 20120215
  Transmission Date: 20120608
  Serious: Yes (Hospitalization, Other)
  Sender: FDA-Public Use
  Company Number: CA-JNJFOC-20120208588

PATIENT
  Age: 64 Year
  Sex: Female

DRUGS (13)
  1. GLYCERIN [Concomitant]
  2. CELEBREX [Concomitant]
  3. ONDANSETRON [Concomitant]
  4. DIMENHYDRINATE [Concomitant]
  5. SENOKOT [Concomitant]
  6. OXYCODONE HCL [Concomitant]
  7. XARELTO [Suspect]
     Indication: PRODUCT USED FOR UNKNOWN INDICATION
     Route: 048
  8. FERROUS GLUCONATE [Concomitant]
  9. PROCHLORPERAZINE [Concomitant]
  10. ACETAMINOPHEN [Concomitant]
  11. DOCUSATE SODIUM [Concomitant]
  12. MORPHINE [Concomitant]
  13. PANTOPRAZOLE [Concomitant]

REACTIONS (1)
  - PLATELET COUNT DECREASED [None]
